FAERS Safety Report 16149425 (Version 1)
Quarter: 2019Q2

REPORT INFORMATION
  Report Type: Spontaneous
  Country: CN (occurrence: CN)
  Receive Date: 20190402
  Receipt Date: 20190402
  Transmission Date: 20190711
  Serious: Yes (Hospitalization)
  Sender: FDA-Public Use
  Company Number: CN-SA-2019SA085168

PATIENT
  Age: 58 Year
  Sex: Male

DRUGS (3)
  1. AMLODIPINE BESILATE [Suspect]
     Active Substance: AMLODIPINE BESYLATE
     Indication: CEREBROVASCULAR DISORDER
     Dosage: 5 MG, QD
     Route: 048
     Dates: start: 20181230, end: 20190101
  2. STILNOX [Suspect]
     Active Substance: ZOLPIDEM TARTRATE
     Indication: CEREBROVASCULAR DISORDER
     Dosage: 10 MG, QD
     Route: 048
     Dates: start: 20181230, end: 20190101
  3. EDARAVONE [Concomitant]
     Active Substance: EDARAVONE
     Indication: CEREBROVASCULAR DISORDER
     Dosage: 30 MG, BID
     Route: 041
     Dates: start: 20181224, end: 20190101

REACTIONS (3)
  - Rash [Recovering/Resolving]
  - Oedema [Recovering/Resolving]
  - Pruritus [Recovering/Resolving]

NARRATIVE: CASE EVENT DATE: 20181231
